FAERS Safety Report 6063584-6 (Version None)
Quarter: 2009Q1

REPORT INFORMATION
  Report Type: 
  Country: None (occurrence: None)
  Receive Date: 20090129
  Receipt Date: 20090119
  Transmission Date: 20090719
  Serious: Yes (Disabling, Other)
  Sender: FDA-Public Use
  Company Number: 1-17346189

PATIENT
  Age: 61 Year
  Sex: Male

DRUGS (3)
  1. CARVEDILOL [Suspect]
     Indication: HYPERTENSION
     Dosage: ORAL
     Route: 048
  2. UNSPECIFIED ANGIOTENSIN RECEPTOR BLOCKER [Concomitant]
  3. THIAZIDE DIURETIC [Concomitant]

REACTIONS (2)
  - PERIPHERAL COLDNESS [None]
  - PEYRONIE'S DISEASE [None]
